FAERS Safety Report 13394995 (Version 1)
Quarter: 2017Q2

REPORT INFORMATION
  Report Type: Spontaneous
  Country: US (occurrence: US)
  Receive Date: 20170403
  Receipt Date: 20170403
  Transmission Date: 20170830
  Serious: No
  Sender: FDA-Public Use
  Company Number: US-B.I. PHARMACEUTICALS,INC./RIDGEFIELD-2017-BI-018229

PATIENT
  Sex: Male

DRUGS (3)
  1. STEROIDS [Concomitant]
     Active Substance: UNSPECIFIED INGREDIENT
     Indication: PRODUCT USED FOR UNKNOWN INDICATION
     Route: 065
  2. OFEV [Suspect]
     Active Substance: NINTEDANIB
     Indication: PRODUCT USED FOR UNKNOWN INDICATION
     Dosage: 1 EVERY 12 HOURS;  FORMULATION: CAPSULE; ? ADMINISTRATION CORRECT? NO ?ACTION(S) TAKEN WITH PRODUCT:
     Route: 048
  3. OFEV [Suspect]
     Active Substance: NINTEDANIB
     Route: 048
     Dates: start: 20170329, end: 20170329

REACTIONS (2)
  - Impulsive behaviour [Unknown]
  - Incorrect drug administration duration [Unknown]

NARRATIVE: CASE EVENT DATE: 20170329
